FAERS Safety Report 9877859 (Version 1)
Quarter: 2014Q1

REPORT INFORMATION
  Report Type: Spontaneous
  Country: US (occurrence: None)
  Receive Date: 20140204
  Receipt Date: 20140204
  Transmission Date: 20141002
  Serious: Yes (Hospitalization)
  Sender: FDA-Public Use
  Company Number: 2014-US-000778

PATIENT
  Age: 44 Year
  Sex: Female
  Weight: 79.4 kg

DRUGS (4)
  1. XYREM (SODIUM OXYBATE) ORAL SOLUTION, 500MG/ML [Suspect]
     Indication: NARCOLEPSY
     Route: 048
     Dates: start: 201312, end: 201312
  2. XYREM (SODIUM OXYBATE) ORAL SOLUTION, 500MG/ML [Suspect]
     Indication: SOMNOLENCE
     Route: 048
     Dates: start: 201312, end: 201312
  3. DEXTROAMPHETAMINE (DEXTROAMPHETAMINE) [Concomitant]
  4. TYLENOL (PARACETAMOL) [Concomitant]

REACTIONS (2)
  - Pancreatitis acute [None]
  - Vomiting [None]
